FAERS Safety Report 4471836-6 (Version None)
Quarter: 2004Q4

REPORT INFORMATION
  Report Type: 
  Country: None (occurrence: None)
  Receive Date: 20041006
  Receipt Date: 20040928
  Transmission Date: 20050328
  Serious: Yes (Death)
  Sender: FDA-Public Use
  Company Number: 2004-BP-08800RO

PATIENT
  Age: 39 Year
  Sex: Male

DRUGS (4)
  1. METHADONE HCL [Suspect]
     Indication: DRUG DEPENDENCE
     Dosage: 60 MG DAILY, PO
     Route: 048
  2. METHADONE HCL [Suspect]
     Indication: PROPHYLAXIS
     Dosage: 60 MG DAILY, PO
     Route: 048
  3. TEMAZEPAM [Suspect]
     Dosage: 20 MG TWICE DAILY (20 MG), PO
     Route: 048
  4. AMITRIPTYLINE HCL [Suspect]

REACTIONS (8)
  - ACCIDENT [None]
  - DRUG SCREEN POSITIVE [None]
  - FLOODING [None]
  - MOBILITY DECREASED [None]
  - SOMNOLENCE [None]
  - SUDDEN DEATH [None]
  - THERAPEUTIC AGENT TOXICITY [None]
  - TREATMENT NONCOMPLIANCE [None]
